FAERS Safety Report 4666159-6 (Version None)
Quarter: 2005Q2

REPORT INFORMATION
  Report Type: 
  Country: None (occurrence: None)
  Receive Date: 20050517
  Receipt Date: 20050517
  Transmission Date: 20051028
  Serious: No
  Sender: FDA-Public Use
  Company Number: None

PATIENT
  Age: 50 Year
  Sex: Male
  Weight: 97 kg

DRUGS (1)
  1. ZOLEDRONIC [Suspect]

REACTIONS (1)
  - OSTEONECROSIS [None]
